FAERS Safety Report 14038584 (Version 3)
Quarter: 2017Q4

REPORT INFORMATION
  Report Type: Spontaneous
  Country: US (occurrence: US)
  Receive Date: 20171004
  Receipt Date: 20171102
  Transmission Date: 20180321
  Serious: Yes (Hospitalization)
  Sender: FDA-Public Use
  Company Number: US-RARE DISEASE THERAPEUTICS, INC.-2028736

PATIENT
  Age: 9 Year
  Sex: Male
  Weight: 30.2 kg

DRUGS (7)
  1. METHOTREXATE. [Suspect]
     Active Substance: METHOTREXATE
     Route: 065
  2. VINCRISTINE [Suspect]
     Active Substance: VINCRISTINE
     Route: 065
  3. CYCLOPHOSPHAMIDE. [Suspect]
     Active Substance: CYCLOPHOSPHAMIDE
     Route: 065
  4. ONCASPAR [Suspect]
     Active Substance: PEGASPARGASE
     Route: 065
  5. PENTAM [Suspect]
     Active Substance: PENTAMIDINE ISETHIONATE
     Route: 065
  6. PURIXAN [Suspect]
     Active Substance: MERCAPTOPURINE
     Indication: NON-HODGKIN^S LYMPHOMA
     Route: 048
     Dates: start: 20170826
  7. CYTARABINE. [Suspect]
     Active Substance: CYTARABINE
     Route: 065

REACTIONS (2)
  - Seizure [Recovered/Resolved]
  - Off label use [None]

NARRATIVE: CASE EVENT DATE: 20170826
